FAERS Safety Report 12661989 (Version 3)
Quarter: 2017Q1

REPORT INFORMATION
  Report Type: Spontaneous
  Country: US (occurrence: US)
  Receive Date: 20160817
  Receipt Date: 20170201
  Transmission Date: 20170428
  Serious: Yes (Other)
  Sender: FDA-Public Use
  Company Number: US-BRISTOL-MYERS SQUIBB COMPANY-BMS-2016-066122

PATIENT
  Age: 77 Year
  Sex: Female
  Weight: 56.69 kg

DRUGS (1)
  1. ELIQUIS [Suspect]
     Active Substance: APIXABAN
     Indication: CEREBROVASCULAR ACCIDENT PROPHYLAXIS
     Dosage: 5 MG, BID
     Route: 048

REACTIONS (6)
  - Haemorrhage [Recovered/Resolved]
  - Haematuria [Recovered/Resolved]
  - Contusion [Recovered/Resolved]
  - Gingival bleeding [Recovered/Resolved]
  - Cough [Recovered/Resolved]
  - Laceration [Recovered/Resolved]
